FAERS Safety Report 6264837-9 (Version None)
Quarter: 2009Q3

REPORT INFORMATION
  Report Type: 
  Country: None (occurrence: None)
  Receive Date: 20090710
  Receipt Date: 20090703
  Transmission Date: 20100115
  Serious: Yes (Hospitalization)
  Sender: FDA-Public Use
  Company Number: FR-BAUSCH-2009BL001560

PATIENT
  Age: 33 Year
  Sex: Female

DRUGS (1)
  1. CARTEOLOL HYDROCHLORIDE [Suspect]
     Indication: GLAUCOMA
     Route: 047
     Dates: start: 20080201, end: 20080503

REACTIONS (4)
  - DRUG EXPOSURE DURING PREGNANCY [None]
  - FAILED FORCEPS DELIVERY [None]
  - INDUCED LABOUR [None]
  - PRE-ECLAMPSIA [None]
